FAERS Safety Report 12111863 (Version 1)
Quarter: 2016Q1

REPORT INFORMATION
  Report Type: Spontaneous
  Country: JP (occurrence: JP)
  Receive Date: 20160224
  Receipt Date: 20160224
  Transmission Date: 20160526
  Serious: Yes (Other)
  Sender: FDA-Public Use
  Company Number: JP-MYLANLABS-2016M1007310

PATIENT

DRUGS (3)
  1. FENTANYL. [Suspect]
     Active Substance: FENTANYL
     Indication: INDUCTION OF ANAESTHESIA
     Dosage: 100 MCG
     Route: 065
  2. LIDOCAINE. [Suspect]
     Active Substance: LIDOCAINE
     Indication: INDUCTION OF ANAESTHESIA
     Dosage: 100 MG
     Route: 065
  3. PROPOFOL. [Suspect]
     Active Substance: PROPOFOL
     Indication: INDUCTION OF ANAESTHESIA
     Dosage: 200 MG
     Route: 065

REACTIONS (3)
  - Atrioventricular block complete [Recovering/Resolving]
  - Bradycardia [Recovering/Resolving]
  - Nodal rhythm [Recovering/Resolving]
